FAERS Safety Report 5134338-X (Version None)
Quarter: 2006Q4

REPORT INFORMATION
  Report Type: 
  Country: None (occurrence: None)
  Receive Date: 20060831
  Receipt Date: 20050906
  Transmission Date: 20070319
  Serious: Yes (Other)
  Sender: FDA-Public Use
  Company Number: 246227

PATIENT
  Age: 81 Year
  Sex: Female

DRUGS (4)
  1. NOVOLIN N [Suspect]
     Indication: DIABETES MELLITUS
     Dosage: 20 IU, QD, SUBCUTANEOUS
     Route: 058
     Dates: start: 20030101
  2. EYE DROPS NOS [Concomitant]
  3. ACCUPRIL [Concomitant]
  4. TYLENOL [Concomitant]

REACTIONS (3)
  - BLOOD GLUCOSE DECREASED [None]
  - BLOOD GLUCOSE INCREASED [None]
  - HYPOGLYCAEMIC COMA [None]
